FAERS Safety Report 7776150-9 (Version None)
Quarter: 2011Q3

REPORT INFORMATION
  Report Type: 
  Country: None (occurrence: None)
  Receive Date: 20110926
  Receipt Date: 20110922
  Transmission Date: 20111222
  Serious: Yes (Hospitalization)
  Sender: FDA-Public Use
  Company Number: US-BRISTOL-MYERS SQUIBB COMPANY-15866114

PATIENT
  Age: 74 Year
  Sex: Female
  Weight: 98 kg

DRUGS (3)
  1. CARDIZEM [Suspect]
  2. COUMADIN [Suspect]
     Dates: start: 19990101
  3. HYDROCHLOROTHIAZIDE [Suspect]

REACTIONS (3)
  - THROMBOSIS [None]
  - SWELLING [None]
  - PULMONARY THROMBOSIS [None]
